FAERS Safety Report 8515084-9 (Version None)
Quarter: 2012Q3

REPORT INFORMATION
  Report Type: 
  Country: None (occurrence: None)
  Receive Date: 20120717
  Receipt Date: 20120706
  Transmission Date: 20120928
  Serious: Yes (Hospitalization)
  Sender: FDA-Public Use
  Company Number: US-VERTEX PHARMACEUTICALS INC.-AE-2012-010144

PATIENT
  Sex: Female

DRUGS (8)
  1. OXYCODONE HCL [Concomitant]
  2. GABAPENTIN [Concomitant]
     Route: 048
  3. LISINOPRIL [Concomitant]
  4. PRISTIQ [Concomitant]
     Route: 048
  5. FENTANYL [Concomitant]
  6. INCIVEK [Suspect]
     Indication: HEPATITIS C
     Route: 048
     Dates: start: 20120417, end: 20120601
  7. RIBASPHERE [Concomitant]
     Indication: HEPATITIS C
     Dates: start: 20120417, end: 20120601
  8. PEGASYS [Concomitant]
     Indication: HEPATITIS C
     Route: 058
     Dates: start: 20120417, end: 20120601

REACTIONS (2)
  - CARDIAC FAILURE CONGESTIVE [None]
  - ACUTE RESPIRATORY FAILURE [None]
